FAERS Safety Report 8543871-X (Version None)
Quarter: 2012Q3

REPORT INFORMATION
  Report Type: 
  Country: None (occurrence: None)
  Receive Date: 20120727
  Receipt Date: 20120721
  Transmission Date: 20120928
  Serious: No
  Sender: FDA-Public Use
  Company Number: PHHY2010BR52133

PATIENT
  Sex: Female
  Weight: 74 kg

DRUGS (6)
  1. FORMOTEROL FUMARATE [Suspect]
     Indication: FATIGUE
     Dosage: 1 DF (12/400 MCG), BID
  2. DIOVAN HCT [Suspect]
     Indication: HYPERTENSION
     Dosage: 1 DF (160/25 MG), PER DAY
     Route: 048
     Dates: start: 20090101
  3. FORMOTEROL FUMARATE [Suspect]
     Indication: ASTHMA
     Dosage: 1 DF (12/400 MCG), QD
  4. AMIODARONE HYDROCHLORIDE PLUS HYDROCHLOROTHIAZIDE [Concomitant]
     Route: 048
  5. DIOVAN [Suspect]
  6. FORMOTEROL FUMARATE [Suspect]
     Indication: COUGH

REACTIONS (1)
  - HEART RATE INCREASED [None]
